FAERS Safety Report 7540876-2 (Version None)
Quarter: 2011Q2

REPORT INFORMATION
  Report Type: 
  Country: None (occurrence: None)
  Receive Date: 20110610
  Receipt Date: 20110601
  Transmission Date: 20111010
  Serious: No
  Sender: FDA-Public Use
  Company Number: B0719414A

PATIENT
  Sex: Male

DRUGS (4)
  1. CLARITHROMYCIN [Concomitant]
     Indication: MYCOPLASMA INFECTION
     Dosage: 400MG PER DAY
     Route: 048
     Dates: start: 20110419, end: 20110423
  2. MINOCYCLINE HCL [Concomitant]
     Indication: MYCOPLASMA INFECTION
     Dosage: 100MG PER DAY
     Route: 048
     Dates: start: 20110419, end: 20110421
  3. TAMIFLU [Concomitant]
     Indication: ANTIVIRAL PROPHYLAXIS
     Dosage: 150MG PER DAY
     Route: 048
     Dates: start: 20110417, end: 20110419
  4. RELENZA [Suspect]
     Indication: INFLUENZA
     Dosage: 20MG PER DAY
     Route: 055
     Dates: start: 20110422, end: 20110423

REACTIONS (2)
  - OROPHARYNGEAL PAIN [None]
  - PRODUCT QUALITY ISSUE [None]
